FAERS Safety Report 17842340 (Version 1)
Quarter: 2020Q2

REPORT INFORMATION
  Report Type: Report from Study
  Country: US (occurrence: US)
  Receive Date: 20200529
  Receipt Date: 20200529
  Transmission Date: 20200714
  Serious: Yes (Other)
  Sender: FDA-Public Use
  Company Number: NVSC2020US146462

PATIENT
  Age: 40 Year
  Sex: Female

DRUGS (1)
  1. GILENYA [Suspect]
     Active Substance: FINGOLIMOD HYDROCHLORIDE
     Indication: MULTIPLE SCLEROSIS
     Dosage: 0.5 MG, QD
     Route: 048
     Dates: start: 20200525, end: 20200525

REACTIONS (5)
  - Blindness transient [Unknown]
  - Head titubation [Unknown]
  - Heart rate decreased [Unknown]
  - Foot deformity [Unknown]
  - Bruxism [Unknown]

NARRATIVE: CASE EVENT DATE: 20200525
